FAERS Safety Report 10182499 (Version 1)
Quarter: 2014Q2

REPORT INFORMATION
  Report Type: Spontaneous
  Country: US (occurrence: None)
  Receive Date: 20140519
  Receipt Date: 20140519
  Transmission Date: 20141212
  Serious: Yes (Other)
  Sender: FDA-Public Use
  Company Number: None

PATIENT
  Age: 68 Year
  Sex: Male
  Weight: 68 kg

DRUGS (8)
  1. LATUDA [Suspect]
     Indication: BIPOLAR I DISORDER
     Route: 048
  2. LAMOTRIGINE [Concomitant]
  3. LISINOPRIL 20 MG [Concomitant]
  4. AMLODIPINE [Concomitant]
  5. ESOMEPRAZOLE [Concomitant]
  6. TAMSULOSIN [Concomitant]
  7. SYMBICORT [Concomitant]
  8. MYRBETRIQ [Concomitant]

REACTIONS (2)
  - Intentional overdose [None]
  - Blood creatinine increased [None]
